FAERS Safety Report 15563131 (Version 7)
Quarter: 2023Q4

REPORT INFORMATION
  Report Type: Report from Study
  Country: CA (occurrence: CA)
  Receive Date: 20181029
  Receipt Date: 20231117
  Transmission Date: 20240110
  Serious: Yes (Other)
  Sender: FDA-Public Use
  Company Number: CA-TAKEDA-2018TUS007694

PATIENT
  Sex: Female

DRUGS (21)
  1. VEDOLIZUMAB [Suspect]
     Active Substance: VEDOLIZUMAB
     Indication: Colitis ulcerative
     Dosage: 300 MILLIGRAM
     Route: 042
     Dates: start: 20180323
  2. VEDOLIZUMAB [Suspect]
     Active Substance: VEDOLIZUMAB
     Dosage: 300 MILLIGRAM, Q4WEEKS
     Route: 042
     Dates: start: 20180601
  3. VEDOLIZUMAB [Suspect]
     Active Substance: VEDOLIZUMAB
     Dosage: 300 MILLIGRAM, Q4WEEKS
     Route: 042
  4. VEDOLIZUMAB [Suspect]
     Active Substance: VEDOLIZUMAB
     Dosage: 300 MILLIGRAM, Q4WEEKS
     Route: 042
  5. VEDOLIZUMAB [Suspect]
     Active Substance: VEDOLIZUMAB
     Dosage: 300 MILLIGRAM, Q4WEEKS
     Route: 042
  6. VEDOLIZUMAB [Suspect]
     Active Substance: VEDOLIZUMAB
     Dosage: 300 MILLIGRAM, Q4WEEKS
     Route: 042
  7. VEDOLIZUMAB [Suspect]
     Active Substance: VEDOLIZUMAB
     Dosage: 300 MILLIGRAM, Q4WEEKS
     Route: 042
  8. VEDOLIZUMAB [Suspect]
     Active Substance: VEDOLIZUMAB
     Dosage: 300 MILLIGRAM
     Route: 042
  9. VITAMIN D [Concomitant]
     Active Substance: VITAMIN D NOS
     Dosage: UNK
  10. PERINDOPRIL [Concomitant]
     Active Substance: PERINDOPRIL
     Dosage: 6 MILLIGRAM
     Dates: start: 20220428
  11. MORPHINE SULFATE [Concomitant]
     Active Substance: MORPHINE SULFATE
     Dosage: 5 MILLIGRAM
     Route: 048
     Dates: start: 20220606
  12. DICYCLOMINE [Concomitant]
     Active Substance: DICYCLOMINE HYDROCHLORIDE
     Dosage: UNK
  13. RESTORIL [Concomitant]
     Active Substance: TEMAZEPAM
     Dosage: 15 MILLIGRAM
     Route: 048
     Dates: start: 20230719
  14. RESTORIL [Concomitant]
     Active Substance: TEMAZEPAM
     Dosage: UNK
  15. SILENOR [Concomitant]
     Active Substance: DOXEPIN HYDROCHLORIDE
     Dosage: 6 MILLIGRAM
     Route: 048
     Dates: start: 20230421
  16. INDAPAMIDE [Concomitant]
     Active Substance: INDAPAMIDE
     Dosage: 1.25 MILLIGRAM
     Route: 048
     Dates: start: 20230331
  17. BISOPROLOL [Concomitant]
     Active Substance: BISOPROLOL\BISOPROLOL FUMARATE
     Dosage: UNK
  18. Salofalk [Concomitant]
     Dosage: UNK
     Dates: start: 200006
  19. CORTIFOAM [Concomitant]
     Active Substance: HYDROCORTISONE ACETATE
     Dosage: UNK
     Dates: start: 20180103
  20. METHYLPREDNISOLONE [Concomitant]
     Active Substance: METHYLPREDNISOLONE
     Indication: Premedication
     Dosage: 100 MILLIGRAM
     Route: 042
  21. BENADRYL [Concomitant]
     Active Substance: DIPHENHYDRAMINE HYDROCHLORIDE
     Indication: Premedication
     Dosage: 50 MILLIGRAM
     Route: 048

REACTIONS (18)
  - Intestinal haemorrhage [Not Recovered/Not Resolved]
  - Tongue discomfort [Not Recovered/Not Resolved]
  - Proctalgia [Unknown]
  - Facial pain [Unknown]
  - Swelling face [Unknown]
  - Oropharyngeal discomfort [Not Recovered/Not Resolved]
  - Anorectal discomfort [Recovered/Resolved]
  - Hypoaesthesia [Recovered/Resolved]
  - Electric shock sensation [Recovered/Resolved]
  - Dysphonia [Unknown]
  - Off label use [Unknown]
  - Dizziness [Not Recovered/Not Resolved]
  - Erythema [Unknown]
  - Rash [Unknown]
  - Cough [Unknown]
  - Oropharyngeal pain [Unknown]
  - Feeling hot [Unknown]
  - Headache [Unknown]

NARRATIVE: CASE EVENT DATE: 20180101
